FAERS Safety Report 8326780-0 (Version None)
Quarter: 2012Q2

REPORT INFORMATION
  Report Type: 
  Country: None (occurrence: None)
  Receive Date: 20120501
  Receipt Date: 20120417
  Transmission Date: 20120825
  Serious: Yes (Hospitalization)
  Sender: FDA-Public Use
  Company Number: NL-MEDIMMUNE-MEDI-0015512

PATIENT
  Sex: Male
  Weight: 4.45 kg

DRUGS (2)
  1. SYNAGIS [Suspect]
     Indication: PREMATURE BABY
     Route: 030
     Dates: start: 20120203, end: 20120328
  2. SYNAGIS [Suspect]
     Route: 030
     Dates: start: 20120417

REACTIONS (3)
  - PYELONEPHRITIS [None]
  - OXYGEN SATURATION DECREASED [None]
  - PYREXIA [None]
